FAERS Safety Report 9711818 (Version 2)
Quarter: 2013Q4

REPORT INFORMATION
  Report Type: Spontaneous
  Country: US (occurrence: US)
  Receive Date: 20131126
  Receipt Date: 20131126
  Transmission Date: 20140711
  Serious: No
  Sender: FDA-Public Use
  Company Number: US-ASTRAZENECA-2013SE54827

PATIENT
  Age: 77 Year
  Sex: Male
  Weight: 82.1 kg

DRUGS (16)
  1. ONGLYZA [Suspect]
     Indication: BLOOD GLUCOSE
     Route: 048
     Dates: start: 2011
  2. CRESTOR [Suspect]
     Indication: BLOOD CHOLESTEROL
     Route: 048
     Dates: start: 201301, end: 20130717
  3. METOPROLOL [Suspect]
     Indication: BLOOD PRESSURE
     Route: 048
     Dates: start: 1990
  4. TRIAMTERENE + HCTZ [Concomitant]
     Indication: BLOOD PRESSURE
     Dosage: 1 DF=37.5 MG/25 MG
     Route: 048
     Dates: start: 1990
  5. METFORMIN [Concomitant]
     Indication: BLOOD GLUCOSE
     Route: 048
  6. AMLODIPINE [Concomitant]
     Indication: BLOOD PRESSURE
     Route: 048
  7. GABAPENTIN [Concomitant]
     Indication: PAIN
     Route: 048
  8. TRAMADOL [Concomitant]
     Indication: PAIN
     Route: 048
  9. FOLIC ACID [Concomitant]
     Indication: VITAMIN SUPPLEMENTATION
     Route: 048
  10. MULTIVITAMIN [Concomitant]
     Indication: VITAMIN SUPPLEMENTATION
     Dosage: 1 DF : 1 UNITS NOS.
     Route: 048
  11. VITAMIN C [Concomitant]
     Indication: VITAMIN SUPPLEMENTATION
     Dosage: 1 DF= 500
     Route: 048
  12. VITAMIN D [Concomitant]
     Indication: VITAMIN SUPPLEMENTATION
     Dosage: 1 DF :1000 UNITS
     Route: 048
  13. COQ10 [Concomitant]
     Indication: ENZYME SUPPLEMENTATION
     Route: 048
  14. PRESERVEX [Concomitant]
     Route: 048
  15. OMEGA 3 FATTY ACID [Concomitant]
     Indication: SUPPLEMENTATION THERAPY
  16. ALPHA LIPONACID [Concomitant]
     Indication: SUPPLEMENTATION THERAPY
     Route: 048

REACTIONS (3)
  - Myalgia [Not Recovered/Not Resolved]
  - Muscle spasms [Not Recovered/Not Resolved]
  - Fatigue [Unknown]
